FAERS Safety Report 4382519-5 (Version None)
Quarter: 2004Q2

REPORT INFORMATION
  Report Type: 
  Country: None (occurrence: None)
  Receive Date: 20040617
  Receipt Date: 20040607
  Transmission Date: 20050107
  Serious: Yes (Other)
  Sender: FDA-Public Use
  Company Number: 2004037817

PATIENT
  Age: 63 Year
  Sex: Male

DRUGS (1)
  1. DOXAZOSIN (DOXAZOSIN) [Suspect]
     Indication: MICTURITION DISORDER
     Dosage: 4 MG (4 MG, 1 IN 1 D), ORAL
     Route: 048

REACTIONS (3)
  - BLOOD PRESSURE DECREASED [None]
  - CHEST DISCOMFORT [None]
  - CONSTIPATION [None]
